FAERS Safety Report 13045363 (Version 6)
Quarter: 2017Q1

REPORT INFORMATION
  Report Type: Spontaneous
  Country: US (occurrence: US)
  Receive Date: 20161220
  Receipt Date: 20170308
  Transmission Date: 20170428
  Serious: No
  Sender: FDA-Public Use
  Company Number: US-ASTRAZENECA-2016SF25069

PATIENT
  Age: 656 Month
  Sex: Female
  Weight: 77.1 kg

DRUGS (10)
  1. SYMBICORT [Suspect]
     Active Substance: BUDESONIDE\FORMOTEROL FUMARATE DIHYDRATE
     Indication: ASTHMA
     Dosage: 160/4.5 MCG 2 PUFFS TWICE A DAY
     Route: 055
     Dates: start: 201105
  2. SYMBICORT [Suspect]
     Active Substance: BUDESONIDE\FORMOTEROL FUMARATE DIHYDRATE
     Indication: CHRONIC OBSTRUCTIVE PULMONARY DISEASE
     Dosage: 160/4.5 MCG 2 PUFFS TWICE A DAY
     Route: 055
     Dates: start: 201105
  3. SYMBICORT [Suspect]
     Active Substance: BUDESONIDE\FORMOTEROL FUMARATE DIHYDRATE
     Indication: MULTIPLE ALLERGIES
     Dosage: 160/4.5 MCG 2 PUFFS TWICE A DAY
     Route: 055
     Dates: start: 20161116
  4. SYMBICORT [Suspect]
     Active Substance: BUDESONIDE\FORMOTEROL FUMARATE DIHYDRATE
     Indication: MULTIPLE ALLERGIES
     Dosage: 160/4.5 MCG 2 PUFFS TWICE A DAY
     Route: 055
     Dates: start: 201105
  5. SYMBICORT [Suspect]
     Active Substance: BUDESONIDE\FORMOTEROL FUMARATE DIHYDRATE
     Indication: ASTHMA
     Dosage: 160/4.5 MCG 2 PUFFS TWICE A DAY
     Route: 055
     Dates: start: 20161116
  6. SYMBICORT [Suspect]
     Active Substance: BUDESONIDE\FORMOTEROL FUMARATE DIHYDRATE
     Indication: CHRONIC OBSTRUCTIVE PULMONARY DISEASE
     Dosage: 160/4.5 MCG 2 PUFFS TWICE A DAY
     Route: 055
     Dates: start: 20161116
  7. IBUPROFEN. [Suspect]
     Active Substance: IBUPROFEN
     Route: 065
  8. VENTROLIN [Concomitant]
     Indication: HYPERSENSITIVITY
     Dosage: 90.0UG AS REQUIRED
     Route: 055
     Dates: start: 2008
  9. ALAVERT ALLERGY [Concomitant]
     Active Substance: LORATADINE
     Indication: MULTIPLE ALLERGIES
     Route: 048
     Dates: start: 2008
  10. LISINOPRIL. [Suspect]
     Active Substance: LISINOPRIL
     Indication: HYPERTENSION
     Route: 048

REACTIONS (16)
  - Intentional product misuse [Not Recovered/Not Resolved]
  - Product taste abnormal [Unknown]
  - Joint injury [Not Recovered/Not Resolved]
  - Visual acuity reduced [Not Recovered/Not Resolved]
  - Insomnia [Unknown]
  - Underdose [Unknown]
  - Device issue [Unknown]
  - Product quality issue [Unknown]
  - Product use issue [Not Recovered/Not Resolved]
  - Drug dose omission [Unknown]
  - Dyspnoea [Not Recovered/Not Resolved]
  - Palpitations [Not Recovered/Not Resolved]
  - Drug hypersensitivity [Not Recovered/Not Resolved]
  - Off label use [Not Recovered/Not Resolved]
  - Dry mouth [Unknown]
  - Asthma [Not Recovered/Not Resolved]

NARRATIVE: CASE EVENT DATE: 201105
